FAERS Safety Report 5168648-7 (Version None)
Quarter: 2006Q4

REPORT INFORMATION
  Report Type: 
  Country: None (occurrence: None)
  Receive Date: 20061211
  Receipt Date: 20061201
  Transmission Date: 20070319
  Serious: Yes (Death)
  Sender: FDA-Public Use
  Company Number: NSADSS2003005192

PATIENT
  Sex: Female
  Weight: 52.62 kg

DRUGS (7)
  1. REMICADE [Suspect]
     Indication: RHEUMATOID ARTHRITIS
     Route: 041
     Dates: start: 20001108
  2. LISINOPRIL [Concomitant]
  3. PREDNISONE TAB [Concomitant]
  4. FOLIC ACID [Concomitant]
  5. ASPIRIN [Concomitant]
  6. VITAMINS [Concomitant]
  7. FOSAMAX [Concomitant]

REACTIONS (1)
  - CARDIAC FAILURE CONGESTIVE [None]
